FAERS Safety Report 6011437-1 (Version None)
Quarter: 2008Q4

REPORT INFORMATION
  Report Type: 
  Country: None (occurrence: None)
  Receive Date: 20081218
  Receipt Date: 20020613
  Transmission Date: 20090506
  Serious: Yes (Death, Life-Threatening, Hospitalization)
  Sender: FDA-Public Use
  Company Number: GB-ROCHE-314742

PATIENT
  Sex: Male

DRUGS (1)
  1. ROFERON-A [Suspect]
     Indication: THROMBOCYTHAEMIA
     Dosage: 3 MEGAUNITS 3 TIMES PER WEEK
     Route: 065
     Dates: end: 20020606

REACTIONS (5)
  - DEATH [None]
  - INTESTINAL ISCHAEMIA [None]
  - LUNG INFILTRATION [None]
  - MULTI-ORGAN FAILURE [None]
  - SEPSIS [None]
